FAERS Safety Report 7443520-8 (Version None)
Quarter: 2011Q2

REPORT INFORMATION
  Report Type: 
  Country: None (occurrence: None)
  Receive Date: 20110420
  Receipt Date: 20110407
  Transmission Date: 20111010
  Serious: Yes (Hospitalization)
  Sender: FDA-Public Use
  Company Number: 2011MA003549

PATIENT
  Age: 60 Year
  Sex: Male

DRUGS (5)
  1. NAPROXEN [Suspect]
     Indication: HYPERTENSION
     Dosage: 500 MG; BID; PO
     Route: 048
  2. RANITIDINE [Concomitant]
  3. LISINOPRIL [Concomitant]
  4. AMLODIPINE BESYLATE [Concomitant]
  5. CLOPIDOGREL [Concomitant]

REACTIONS (18)
  - ABDOMINAL DISCOMFORT [None]
  - LIPASE INCREASED [None]
  - PARALYSIS [None]
  - BLOOD UREA INCREASED [None]
  - WHITE BLOOD CELL COUNT INCREASED [None]
  - HYPERKALAEMIA [None]
  - DYSPNOEA [None]
  - BLOOD CALCIUM INCREASED [None]
  - CARBON DIOXIDE DECREASED [None]
  - RENAL FAILURE CHRONIC [None]
  - DIARRHOEA [None]
  - BLOOD CREATININE INCREASED [None]
  - NAUSEA [None]
  - BLOOD AMYLASE INCREASED [None]
  - ELECTROCARDIOGRAM QRS COMPLEX PROLONGED [None]
  - ASTHENIA [None]
  - ELECTROCARDIOGRAM T WAVE ABNORMAL [None]
  - VOMITING [None]
